FAERS Safety Report 25598369 (Version 1)
Quarter: 2025Q3

REPORT INFORMATION
  Report Type: Spontaneous
  Country: JP (occurrence: JP)
  Receive Date: 20250723
  Receipt Date: 20250723
  Transmission Date: 20251021
  Serious: Yes (Other)
  Sender: ANI
  Company Number: JP-ANIPHARMA-2025-JP-000107

PATIENT
  Age: 78 Year
  Sex: Female
  Weight: 48.3 kg

DRUGS (7)
  1. ARIMIDEX [Suspect]
     Active Substance: ANASTROZOLE
     Indication: Breast cancer
     Route: 048
     Dates: start: 20240425, end: 20250313
  2. PRAVASTATIN [Suspect]
     Active Substance: PRAVASTATIN
     Route: 048
     Dates: start: 202102, end: 20250425
  3. ALFACALCIDOL [Concomitant]
     Active Substance: ALFACALCIDOL
     Dates: start: 20250425
  4. MOSAPRIDE [Concomitant]
     Active Substance: MOSAPRIDE
     Dates: start: 202401
  5. BISOPROLOL FUMARATE [Concomitant]
     Active Substance: BISOPROLOL FUMARATE
     Dates: start: 20250301
  6. ESOMEPRAZOLE MAGNESIUM [Concomitant]
     Active Substance: ESOMEPRAZOLE MAGNESIUM
     Dates: start: 20250301
  7. HERBALS [Suspect]
     Active Substance: HERBALS
     Dates: start: 20250329, end: 20250421

REACTIONS (3)
  - Pneumonia [Unknown]
  - Pulmonary toxicity [Recovering/Resolving]
  - Radiation pneumonitis [Unknown]

NARRATIVE: CASE EVENT DATE: 20250215
